FAERS Safety Report 7370261-8 (Version None)
Quarter: 2011Q1

REPORT INFORMATION
  Report Type: 
  Country: None (occurrence: None)
  Receive Date: 20110323
  Receipt Date: 20110317
  Transmission Date: 20110831
  Serious: Yes (Death, Hospitalization, Disabling, Other)
  Sender: FDA-Public Use
  Company Number: PHHY2011EC22537

PATIENT
  Age: 71 Year
  Sex: Female

DRUGS (1)
  1. DIOVAN HCT [Suspect]
     Indication: HYPERTENSION
     Dosage: 160/12.5 MG
     Route: 048
     Dates: start: 20000101

REACTIONS (4)
  - MONONEUROPATHY MULTIPLEX [None]
  - ABASIA [None]
  - PNEUMONIA [None]
  - INFLUENZA [None]
